FAERS Safety Report 6968884-0 (Version None)
Quarter: 2010Q3

REPORT INFORMATION
  Report Type: 
  Country: None (occurrence: None)
  Receive Date: 20100907
  Receipt Date: 20100826
  Transmission Date: 20110219
  Serious: Yes (Other)
  Sender: FDA-Public Use
  Company Number: US-PFIZER INC-2010108208

PATIENT
  Sex: Male
  Weight: 79.819 kg

DRUGS (5)
  1. GABAPENTIN [Suspect]
     Indication: ANXIETY
     Dosage: 400 MG, 3X/DAY
     Route: 048
     Dates: start: 20100814
  2. FENTANYL [Suspect]
     Indication: BACK PAIN
     Dosage: 100 UG, 1 PATCH EVERY 3 DAYS
     Route: 062
     Dates: start: 20070801, end: 20100813
  3. FENTANYL [Suspect]
     Indication: SURGERY
     Dosage: 75 UG, 1 PATCH EVERY 3 DAYS
     Dates: start: 20100814
  4. HYDROCODONE [Concomitant]
     Indication: PAIN
     Dosage: 7.5MG/325MG, AS NEEDED
     Route: 048
  5. AMBIEN [Concomitant]
     Indication: SLEEP DISORDER
     Dosage: 10 MG, 1X/DAY
     Route: 048

REACTIONS (5)
  - APPLICATION SITE ERYTHEMA [None]
  - CHILLS [None]
  - CONVULSION [None]
  - HOT FLUSH [None]
  - HYPERHIDROSIS [None]
